FAERS Safety Report 15354925 (Version 2)
Quarter: 2018Q3

REPORT INFORMATION
  Report Type: Spontaneous
  Country: FR (occurrence: FR)
  Receive Date: 20180906
  Receipt Date: 20180921
  Transmission Date: 20181010
  Serious: Yes (Hospitalization)
  Sender: FDA-Public Use
  Company Number: FR-SUN PHARMACEUTICAL INDUSTRIES LTD-2018R1-183586

PATIENT
  Age: 14 Year
  Sex: Male
  Weight: 80 kg

DRUGS (3)
  1. AERIUS [Suspect]
     Active Substance: DESLORATADINE
     Indication: AQUAGENIC PRURITUS
     Dosage: 5 MG, QD
     Route: 048
     Dates: end: 20180723
  2. LAMICTAL [Suspect]
     Active Substance: LAMOTRIGINE
     Indication: EPILEPSY
     Dosage: UNK
     Route: 048
     Dates: start: 2007, end: 20180723
  3. RISPERIDONE. [Suspect]
     Active Substance: RISPERIDONE
     Indication: ATTENTION DEFICIT/HYPERACTIVITY DISORDER
     Dosage: UNK
     Route: 048
     Dates: start: 2013, end: 20180723

REACTIONS (1)
  - Neuroleptic malignant syndrome [Not Recovered/Not Resolved]

NARRATIVE: CASE EVENT DATE: 20180723
